FAERS Safety Report 18339930 (Version 1)
Quarter: 2020Q4

REPORT INFORMATION
  Report Type: Spontaneous
  Country: NL (occurrence: NL)
  Receive Date: 20201002
  Receipt Date: 20201002
  Transmission Date: 20210113
  Serious: Yes (Hospitalization)
  Sender: FDA-Public Use
  Company Number: NL-TEVA-2020-NL-1833394

PATIENT
  Age: 60 Year
  Sex: Female
  Weight: 98 kg

DRUGS (12)
  1. VERAPAMIL TABLET MGA 240MG / BRAND NAME NOT SPECIFIED [Concomitant]
     Dosage: 240 MG, THERAPY START DATE, THERAPY END DATE: ASKED BUT UNKNOWN
  2. CLONAZEPAM TABLET 0,5MG / RIVOTRIL TABLET 0,5MG [Concomitant]
     Dosage: 1MG DD, THERAPY START DATE, THERAPY END DATE: ASKED BUT UNKNOWN
  3. PANTOPRAZOL TABLET MSR 40MG / BRAND NAME NOT SPECIFIED [Concomitant]
     Active Substance: PANTOPRAZOLE
     Dosage: 40MG DD, THERAPY START DATE, THERAPY END DATE: ASKED BUT UNKNOWN
  4. SOLIFENACINE TABLET 10MG / VESICARE TABLET FILMOMHULD 10MG [Concomitant]
     Dosage: 10 MG, THERAPY START DATE, THERAPY END DATE: ASKED BUT UNKNOWN
  5. AMILORIDE/HYDROCHLOORTHIAZIDE TABLET 2,5/25MG / BRAND NAME NOT SPECIFI [Suspect]
     Active Substance: AMILORIDE HYDROCHLORIDE\HYDROCHLOROTHIAZIDE
     Indication: HYPERTENSION
     Dosage: 12.5 MG / DAY:UNIT DOSE:0.5 DOSAGE FORM
     Dates: start: 2015, end: 20170714
  6. FLECAINIDE CAPSULE MGA 150MG / BRAND NAME NOT SPECIFIED [Concomitant]
     Dosage: 150 MILLIGRAM DAILY; THERAPY START DATE, THERAPY END DATE: ASKED BUT UNKNOWN
  7. CANDESARTAN TABLET  8MG / BRAND NAME NOT SPECIFIED [Concomitant]
     Dosage: 1DD12MG, THERAPY START DATE, THERAPY END DATE: ASKED BUT UNKNOWN
  8. ASCORBINEZUUR / BRAND NAME NOT SPECIFIED [Concomitant]
     Dosage: THERAPY START DATE, THERAPY END DATE: ASKED BUT UNKNOWN
  9. FERROFUMARAAT - NON-CURRENT DRUG / BRAND NAME NOT SPECIFIED [Concomitant]
     Dosage: THERAPY START DATE, THERAPY END DATE: ASKED BUT UNKNOWN
  10. DULOXETINE CAPSULE MSR 30MG / CYMBALTA CAPSULE MSR 30MG [Concomitant]
     Dosage: 30 MG, THERAPY START DATE, THERAPY END DATE: ASKED BUT UNKNOWN
  11. MULTIVITAMINEN [Concomitant]
     Dosage: THERAPY START DATE, THERAPY END DATE: ASKED BUT UNKNOWN
  12. CALCIUMCARB/COLECAL KAUWT 1,25G/1000IE (500MG CA) / BRAND NAME NOT SPE [Concomitant]
     Dosage: THERAPY START DATE, THERAPY END DATE: ASKED BUT UNKNOWN

REACTIONS (3)
  - Rectal haemorrhage [Recovering/Resolving]
  - Restless legs syndrome [Recovered/Resolved]
  - Colitis [Recovering/Resolving]

NARRATIVE: CASE EVENT DATE: 2015
